FAERS Safety Report 5786777-1 (Version None)
Quarter: 2008Q2

REPORT INFORMATION
  Report Type: 
  Country: None (occurrence: None)
  Receive Date: 20080618
  Receipt Date: 20071207
  Transmission Date: 20081010
  Serious: Yes (Other)
  Sender: FDA-Public Use
  Company Number: DSJ-2007-10329

PATIENT
  Age: 61 Year
  Sex: Female

DRUGS (1)
  1. OLMETEC (OLMESARTAM MEDOXOMIL) (TABLET) (OLMESARTAN MEDOXOMIL) [Suspect]
     Dosage: ORAL
     Route: 048
     Dates: start: 20060601, end: 20060901

REACTIONS (1)
  - PHOTOSENSITIVITY REACTION [None]
